FAERS Safety Report 7712108-3 (Version None)
Quarter: 2011Q3

REPORT INFORMATION
  Report Type: 
  Country: None (occurrence: None)
  Receive Date: 20110823
  Receipt Date: 20110805
  Transmission Date: 20111222
  Serious: Yes (Life-Threatening, Hospitalization, Other)
  Sender: FDA-Public Use
  Company Number: 201111041

PATIENT
  Sex: Male

DRUGS (1)
  1. LIORESAL [Suspect]
     Indication: MUSCLE SPASTICITY
     Dosage: INTRATHECAL
     Route: 037

REACTIONS (24)
  - BLOOD URINE PRESENT [None]
  - MENTAL IMPAIRMENT [None]
  - WHITE BLOOD CELL COUNT INCREASED [None]
  - IMPLANT SITE INFECTION [None]
  - METABOLIC ACIDOSIS [None]
  - BLOOD CREATINE PHOSPHOKINASE INCREASED [None]
  - CULTURE URINE POSITIVE [None]
  - HYPERTONIA [None]
  - URINE ABNORMALITY [None]
  - HYPERHIDROSIS [None]
  - WOUND SECRETION [None]
  - RESTLESSNESS [None]
  - PAIN [None]
  - PURULENCE [None]
  - URINARY TRACT INFECTION [None]
  - TREMOR [None]
  - DYSTONIA [None]
  - STAPHYLOCOCCUS TEST POSITIVE [None]
  - INFECTION [None]
  - COGNITIVE DISORDER [None]
  - DRUG WITHDRAWAL SYNDROME [None]
  - TOXICITY TO VARIOUS AGENTS [None]
  - DEPRESSED LEVEL OF CONSCIOUSNESS [None]
  - CONVULSION [None]
